FAERS Safety Report 8434602-2 (Version None)
Quarter: 2012Q2

REPORT INFORMATION
  Report Type: 
  Country: None (occurrence: None)
  Receive Date: 20120614
  Receipt Date: 20120608
  Transmission Date: 20120825
  Serious: Yes (Other)
  Sender: FDA-Public Use
  Company Number: US-BIOGENIDEC-2005BI021637

PATIENT
  Age: 40 Year
  Sex: Female

DRUGS (2)
  1. AVONEX [Suspect]
     Route: 030
     Dates: start: 20050305, end: 20061106
  2. AVONEX [Suspect]
     Indication: MULTIPLE SCLEROSIS
     Route: 030
     Dates: start: 20010101, end: 20050209

REACTIONS (2)
  - CONVULSION [None]
  - INFLUENZA LIKE ILLNESS [None]
